FAERS Safety Report 9054378 (Version 1)
Quarter: 2013Q1

REPORT INFORMATION
  Report Type: Spontaneous
  Country: US (occurrence: US)
  Receive Date: 20130208
  Receipt Date: 20130208
  Transmission Date: 20140127
  Serious: No
  Sender: FDA-Public Use
  Company Number: US-GLAXOSMITHKLINE-A0967715A

PATIENT
  Age: 37 Year
  Sex: Male

DRUGS (1)
  1. PAXIL CR [Suspect]
     Indication: STRESS
     Dosage: 40MGD PER DAY
     Route: 048

REACTIONS (2)
  - Libido decreased [Not Recovered/Not Resolved]
  - Ejaculation disorder [Unknown]
